FAERS Safety Report 9559294 (Version 1)
Quarter: 2013Q3

REPORT INFORMATION
  Report Type: Spontaneous
  Country: US (occurrence: None)
  Receive Date: 20130906
  Receipt Date: 20130906
  Transmission Date: 20140515
  Serious: No
  Sender: FDA-Public Use
  Company Number: 163-POMAL-13061641

PATIENT
  Age: 75 Year
  Sex: Male

DRUGS (8)
  1. POMALYST [Suspect]
     Indication: PLASMA CELL MYELOMA
     Dosage: 2 MG, 21 IN 28 D, PO
     Dates: start: 20130514
  2. DEXAMETHASONE (DEXAMETHASONE) (UNKNOWN) [Suspect]
     Indication: PRODUCT USED FOR UNKNOWN INDICATION
  3. TRILIPIX DR (CHOLINE FENOFIBRATE) UNKNOWN [Concomitant]
  4. ACYCLOVIR (ACICLOVIR) (UNKNOW N) [Concomitant]
  5. GABAPENTIN (GABAPENTIN) (UNKNOWN) (GABAPENTIN) [Concomitant]
  6. KLOR-CON (POTASSIUM CHLORIDE) (UNKNOWN) [Concomitant]
  7. LEXAPRO (ESCITALOPRAM OXALATE) UNKNOWN [Concomitant]
  8. MAGNESIUM OXIDE (MAGNESIUM OXIDE) (UNKNOWN) [Concomitant]

REACTIONS (2)
  - Pruritus [None]
  - Emotional disorder [None]
